FAERS Safety Report 6600406-6 (Version None)
Quarter: 2010Q1

REPORT INFORMATION
  Report Type: 
  Country: None (occurrence: None)
  Receive Date: 20100223
  Receipt Date: 20100223
  Transmission Date: 20100710
  Serious: Yes (Other)
  Sender: FDA-Public Use
  Company Number: None

PATIENT
  Sex: Female
  Weight: 68.0396 kg

DRUGS (1)
  1. AVELOX [Suspect]
     Indication: SINUSITIS
     Dosage: 400 MG ONCE A DAY ORALLY
     Route: 048
     Dates: start: 20100116, end: 20100119

REACTIONS (12)
  - ARTHRALGIA [None]
  - BURNING SENSATION [None]
  - CONDITION AGGRAVATED [None]
  - IMPAIRED WORK ABILITY [None]
  - MULTIPLE INJURIES [None]
  - MUSCULOSKELETAL PAIN [None]
  - NAUSEA [None]
  - OTITIS EXTERNA [None]
  - PAIN IN EXTREMITY [None]
  - PARAESTHESIA [None]
  - SINUSITIS [None]
  - VOMITING [None]
